FAERS Safety Report 14928177 (Version 2)
Quarter: 2018Q4

REPORT INFORMATION
  Report Type: Report from Study
  Country: IT (occurrence: IT)
  Receive Date: 20180523
  Receipt Date: 20181128
  Transmission Date: 20190204
  Serious: Yes (Other)
  Sender: FDA-Public Use
  Company Number: IT-PFIZER INC-2018146865

PATIENT
  Age: 17 Year
  Sex: Female

DRUGS (3)
  1. ALPRAZOLAM. [Suspect]
     Active Substance: ALPRAZOLAM
     Indication: DRUG ABUSE
     Dosage: 20 DF, SINGLE
     Route: 048
     Dates: start: 20180207, end: 20180207
  2. MELATONINA [Concomitant]
     Dosage: UNK
  3. QUETIAPINE. [Concomitant]
     Active Substance: QUETIAPINE
     Dosage: 400 MG, 1X/DAY
     Route: 048

REACTIONS (3)
  - Poisoning [Unknown]
  - Product use issue [Unknown]
  - Drug abuse [Unknown]

NARRATIVE: CASE EVENT DATE: 20180207
